FAERS Safety Report 9899317 (Version 3)
Quarter: 2014Q1

REPORT INFORMATION
  Report Type: Report from Study
  Country: PL (occurrence: PL)
  Receive Date: 20140214
  Receipt Date: 20140306
  Transmission Date: 20141002
  Serious: Yes (Hospitalization)
  Sender: FDA-Public Use
  Company Number: PL-AMGEN-POLCT2013026065

PATIENT
  Age: 84 Year
  Sex: Female

DRUGS (15)
  1. DENOSUMAB [Suspect]
     Indication: OSTEOPOROSIS POSTMENOPAUSAL
     Dosage: 60 MG, Q6MO
     Route: 058
     Dates: start: 20080415
  2. CALCIUM WITH VITAMIN D3 [Concomitant]
     Dosage: UNK UNK, QD
     Route: 048
     Dates: start: 20080415
  3. METHOTREXAT [Concomitant]
     Dosage: 20 MG, QWK
     Route: 048
     Dates: start: 20121101, end: 20130410
  4. VIGANTOLETTEN [Concomitant]
     Dosage: 500 IU, QD
     Route: 048
     Dates: start: 20080415
  5. KALIPOZ-PROLONGATUM [Concomitant]
     Dosage: 391 MG, QD
     Route: 048
     Dates: start: 20061220
  6. RUTINOSCORBIN [Concomitant]
     Dosage: UNK UNK, QD
     Route: 048
     Dates: start: 200810
  7. ARTHRYL [Concomitant]
     Dosage: 1500 MG, QD
     Route: 048
     Dates: start: 200911
  8. MYDOCALM FORTE [Concomitant]
     Dosage: 150 MG, AS NECESSARY
     Route: 048
     Dates: start: 201001
  9. ACENOCOUMAROL [Concomitant]
     Dosage: 2 MG, QD
     Route: 048
     Dates: start: 20120417
  10. BISOCARD [Concomitant]
     Dosage: 1.2 MG, QD
     Route: 048
     Dates: start: 20120424
  11. CORDARONE [Concomitant]
     Dosage: 200 MG, QD
     Route: 048
     Dates: start: 20120424
  12. AXTIL [Concomitant]
     Dosage: 2.5 MG, QD
     Route: 048
     Dates: start: 20120424
  13. ZOCOR [Concomitant]
     Dosage: 10 MG, QD
     Route: 048
     Dates: start: 20120424
  14. METYPRED                           /00049601/ [Concomitant]
     Dosage: 6 MG, QD
     Route: 048
     Dates: start: 20130416
  15. CONTROLOC [Concomitant]
     Dosage: 40 MG, QD
     Route: 048
     Dates: start: 20120424

REACTIONS (1)
  - Pancytopenia [Recovered/Resolved]
